FAERS Safety Report 19024905 (Version 2)
Quarter: 2021Q2

REPORT INFORMATION
  Report Type: Spontaneous
  Country: AU (occurrence: AU)
  Receive Date: 20210318
  Receipt Date: 20210409
  Transmission Date: 20210717
  Serious: Yes (Other)
  Sender: FDA-Public Use
  Company Number: AU-PFIZER INC-2021264493

PATIENT
  Age: 62 Year
  Sex: Female

DRUGS (4)
  1. OXYCODONE [Suspect]
     Active Substance: OXYCODONE
     Indication: DRUG USE DISORDER
     Dosage: PATCH
     Dates: start: 2014, end: 20141001
  2. BUPRENORPHINE. [Suspect]
     Active Substance: BUPRENORPHINE
     Indication: DRUG USE DISORDER
     Dosage: PATCH
     Dates: start: 201410
  3. KETAMINE HCL [Suspect]
     Active Substance: KETAMINE HYDROCHLORIDE
     Indication: BACK PAIN
     Dosage: UNK (6 MG/HR)
     Dates: start: 201410
  4. CLONIDINE. [Concomitant]
     Active Substance: CLONIDINE
     Dosage: TWICE A DAY, TOTAL DOSES OF 100 MCG/DAY
     Route: 048
     Dates: start: 201410

REACTIONS (2)
  - Sedation [Unknown]
  - Condition aggravated [Unknown]
